FAERS Safety Report 11160323 (Version 1)
Quarter: 2015Q2

REPORT INFORMATION
  Report Type: Spontaneous
  Country: PL (occurrence: PL)
  Receive Date: 20150604
  Receipt Date: 20150604
  Transmission Date: 20150821
  Serious: Yes (Hospitalization)
  Sender: FDA-Public Use
  Company Number: PL-ROCHE-1587347

PATIENT
  Age: 41 Year
  Sex: Female

DRUGS (2)
  1. ACTILYSE [Suspect]
     Active Substance: ALTEPLASE
     Indication: ISCHAEMIC STROKE
     Route: 042
     Dates: start: 2011
  2. ACTILYSE [Suspect]
     Active Substance: ALTEPLASE
     Indication: BRAIN OEDEMA

REACTIONS (1)
  - Intracranial pressure increased [Unknown]
